FAERS Safety Report 5706677-2 (Version None)
Quarter: 2008Q2

REPORT INFORMATION
  Report Type: 
  Country: None (occurrence: None)
  Receive Date: 20080415
  Receipt Date: 20080415
  Transmission Date: 20081010
  Serious: Yes (Life-Threatening, Hospitalization, Disabling, Congenital Anomaly, Other)
  Sender: FDA-Public Use
  Company Number: None

PATIENT
  Age: 47 Year
  Sex: Male
  Weight: 55.7924 kg

DRUGS (2)
  1. PLAQUENIL [Suspect]
     Indication: FIBROMYALGIA
     Dosage: 250 MG (ESTIMATED)
     Dates: start: 20070921
  2. PLAQUENIL [Suspect]
     Indication: IMMUNODEFICIENCY
     Dosage: 250 MG (ESTIMATED)
     Dates: start: 20070921

REACTIONS (63)
  - ABDOMINAL PAIN [None]
  - ABDOMINAL WALL DISORDER [None]
  - ACCIDENTAL EXPOSURE [None]
  - AGITATION [None]
  - AMNESIA [None]
  - ANGINA PECTORIS [None]
  - ANOREXIA [None]
  - ASPHYXIA [None]
  - BACK PAIN [None]
  - BLINDNESS [None]
  - CHEST PAIN [None]
  - DEAFNESS [None]
  - DIARRHOEA [None]
  - DIZZINESS [None]
  - DRUG TOXICITY [None]
  - DYSGEUSIA [None]
  - DYSPNOEA [None]
  - EMOTIONAL DISTRESS [None]
  - EYE PAIN [None]
  - FEAR [None]
  - FEELING ABNORMAL [None]
  - FEELING COLD [None]
  - GAIT DISTURBANCE [None]
  - GASTROINTESTINAL DISORDER [None]
  - GASTROINTESTINAL PAIN [None]
  - GENERAL PHYSICAL HEALTH DETERIORATION [None]
  - HAEMATOCRIT DECREASED [None]
  - HAEMOGLOBIN ABNORMAL [None]
  - HAEMOGLOBIN DECREASED [None]
  - HAEMORRHAGE [None]
  - HAIR COLOUR CHANGES [None]
  - HEADACHE [None]
  - HYPOVENTILATION [None]
  - LUNG DISORDER [None]
  - MENTAL DISORDER [None]
  - MOOD ALTERED [None]
  - MUSCLE SPASMS [None]
  - MUSCULAR WEAKNESS [None]
  - NAUSEA [None]
  - NECK PAIN [None]
  - NERVOUSNESS [None]
  - PAIN [None]
  - PAIN IN EXTREMITY [None]
  - PANIC REACTION [None]
  - PHARMACEUTICAL PRODUCT COMPLAINT [None]
  - PHARYNGOLARYNGEAL PAIN [None]
  - PLATELET COUNT DECREASED [None]
  - PLATELET DISORDER [None]
  - POISONING [None]
  - PRURITUS [None]
  - PYREXIA [None]
  - READING DISORDER [None]
  - RED BLOOD CELL ABNORMALITY [None]
  - RED BLOOD CELL COUNT DECREASED [None]
  - RESTLESSNESS [None]
  - RETINOPATHY [None]
  - SOMNOLENCE [None]
  - TINNITUS [None]
  - TREMOR [None]
  - VISION BLURRED [None]
  - VISUAL DISTURBANCE [None]
  - WEIGHT DECREASED [None]
  - WHITE BLOOD CELL COUNT DECREASED [None]
